FAERS Safety Report 4787118-9 (Version None)
Quarter: 2005Q4

REPORT INFORMATION
  Report Type: 
  Country: None (occurrence: None)
  Receive Date: 20051004
  Receipt Date: 20050920
  Transmission Date: 20060501
  Serious: Yes (Hospitalization)
  Sender: FDA-Public Use
  Company Number: FR-GLAXOSMITHKLINE-B0394609A

PATIENT
  Age: 84 Year
  Sex: Female
  Weight: 85 kg

DRUGS (11)
  1. DERMOVAL [Suspect]
     Route: 061
     Dates: start: 20050802, end: 20050817
  2. IMOVANE [Suspect]
     Dosage: 7.5MG PER DAY
     Route: 048
     Dates: end: 20050810
  3. HYPERIUM [Concomitant]
  4. LOXEN [Concomitant]
  5. COTAREG [Concomitant]
  6. TAHOR [Concomitant]
  7. NITRODERM [Concomitant]
  8. PLAVIX [Concomitant]
  9. TEGRETOL [Concomitant]
  10. COLD CREAM [Concomitant]
  11. INSULINE [Concomitant]

REACTIONS (1)
  - DIABETES MELLITUS NON-INSULIN-DEPENDENT [None]
